FAERS Safety Report 9885972 (Version 1)
Quarter: 2014Q1

REPORT INFORMATION
  Report Type: Spontaneous
  Country: GB (occurrence: GB)
  Receive Date: 20140210
  Receipt Date: 20140210
  Transmission Date: 20141002
  Serious: Yes (Other)
  Sender: FDA-Public Use
  Company Number: GB-GLAXOSMITHKLINE-B0938637A

PATIENT
  Age: 36 Year
  Sex: Female

DRUGS (1)
  1. ACYCLOVIR [Suspect]
     Indication: GENITAL HERPES
     Dosage: 1200MG PER DAY
     Route: 048

REACTIONS (2)
  - Abortion spontaneous [Unknown]
  - Vaginal haemorrhage [Unknown]
